FAERS Safety Report 11140662 (Version 1)
Quarter: 2015Q2

REPORT INFORMATION
  Report Type: Spontaneous
  Country: US (occurrence: None)
  Receive Date: 20150526
  Receipt Date: 20150526
  Transmission Date: 20150821
  Serious: Yes (Other)
  Sender: FDA-Public Use
  Company Number: None

PATIENT
  Age: 69 Year
  Sex: Female

DRUGS (1)
  1. GAZYVA [Suspect]
     Active Substance: OBINUTUZUMAB
     Indication: CHRONIC LYMPHOCYTIC LEUKAEMIA
     Route: 042
     Dates: start: 20150520, end: 20150521

REACTIONS (7)
  - Feeling hot [None]
  - Nausea [None]
  - Infusion related reaction [None]
  - Hyperhidrosis [None]
  - Hypotension [None]
  - Chest discomfort [None]
  - Oxygen saturation decreased [None]

NARRATIVE: CASE EVENT DATE: 20150520
